FAERS Safety Report 12926625 (Version 1)
Quarter: 2016Q4

REPORT INFORMATION
  Report Type: Spontaneous
  Country: US (occurrence: US)
  Receive Date: 20161109
  Receipt Date: 20161109
  Transmission Date: 20170207
  Serious: No
  Sender: FDA-Public Use
  Company Number: US-MISSION PHARMACAL COMPANY-1059384

PATIENT
  Age: 69 Year
  Sex: Female

DRUGS (2)
  1. THIOLA [Suspect]
     Active Substance: TIOPRONIN
     Indication: CYSTINOSIS
     Route: 065
     Dates: start: 20160404
  2. PRILOSEC [Concomitant]
     Active Substance: OMEPRAZOLE MAGNESIUM
     Route: 065

REACTIONS (3)
  - Nausea [Unknown]
  - Abdominal pain upper [Unknown]
  - Abdominal discomfort [Unknown]
